FAERS Safety Report 13489340 (Version 1)
Quarter: 2017Q2

REPORT INFORMATION
  Report Type: Spontaneous
  Country: RU (occurrence: RU)
  Receive Date: 20170426
  Receipt Date: 20170426
  Transmission Date: 20170830
  Serious: Yes (Hospitalization)
  Sender: FDA-Public Use
  Company Number: RU-ALKERMES INC.-ALK-2017-000992

PATIENT
  Age: 60 Year
  Weight: 115 kg

DRUGS (1)
  1. VIVITROL [Suspect]
     Active Substance: NALTREXONE
     Indication: ALCOHOLISM
     Dosage: 380 MG, QMO
     Route: 030
     Dates: start: 20170218, end: 20170223

REACTIONS (1)
  - Pulmonary embolism [Not Recovered/Not Resolved]
